FAERS Safety Report 6702484-2 (Version None)
Quarter: 2010Q2

REPORT INFORMATION
  Report Type: 
  Country: None (occurrence: None)
  Receive Date: 20100429
  Receipt Date: 20100419
  Transmission Date: 20101027
  Serious: Yes (Congenital Anomaly, Other)
  Sender: FDA-Public Use
  Company Number: B0650205A

PATIENT

DRUGS (2)
  1. ONDANSETRON [Suspect]
     Indication: VOMITING
     Dosage: 4MG PER DAY
  2. PANADOL [Concomitant]

REACTIONS (2)
  - CARDIAC SEPTAL DEFECT [None]
  - DRUG EXPOSURE DURING PREGNANCY [None]
